FAERS Safety Report 4840384-3 (Version None)
Quarter: 2005Q4

REPORT INFORMATION
  Report Type: 
  Country: None (occurrence: None)
  Receive Date: 20051031
  Receipt Date: 20050218
  Transmission Date: 20060501
  Serious: Yes (Disabling, Other)
  Sender: FDA-Public Use
  Company Number: PHEH2005US01045

PATIENT
  Age: 74 Year
  Sex: Female
  Weight: 95.2 kg

DRUGS (3)
  1. LESCOL XL [Suspect]
     Indication: HYPERCHOLESTEROLAEMIA
     Dosage: 80 MG, QD, ORAL
     Route: 048
     Dates: start: 20040115, end: 20040309
  2. COUMADIN [Suspect]
  3. PRECOSE [Concomitant]

REACTIONS (12)
  - ALANINE AMINOTRANSFERASE INCREASED [None]
  - ASPARTATE AMINOTRANSFERASE INCREASED [None]
  - BLOOD ALKALINE PHOSPHATASE INCREASED [None]
  - BLOOD BILIRUBIN INCREASED [None]
  - HEPATITIS [None]
  - HYPERLIPIDAEMIA [None]
  - INTERNATIONAL NORMALISED RATIO INCREASED [None]
  - JAUNDICE [None]
  - NAUSEA [None]
  - PAIN [None]
  - PROTHROMBIN TIME PROLONGED [None]
  - VOMITING [None]
